FAERS Safety Report 13851269 (Version 2)
Quarter: 2017Q3

REPORT INFORMATION
  Report Type: Spontaneous
  Country: JP (occurrence: JP)
  Receive Date: 20170809
  Receipt Date: 20170829
  Transmission Date: 20171127
  Serious: Yes (Death, Other)
  Sender: FDA-Public Use
  Company Number: JP-TEVA-2017-JP-002541J

PATIENT
  Age: 62 Year
  Sex: Male
  Weight: 69 kg

DRUGS (3)
  1. NICARDIPINE HYDROCHLORIDE. [Concomitant]
     Active Substance: NICARDIPINE HYDROCHLORIDE
     Indication: HYPERTENSION
     Route: 042
     Dates: start: 20170710, end: 20170719
  2. CERCINE [Suspect]
     Active Substance: DIAZEPAM
     Indication: SEDATION
     Route: 042
     Dates: start: 20170718, end: 20170718
  3. SULBACILLIN [Concomitant]
     Active Substance: AMPICILLIN SODIUM\SULBACTAM SODIUM
     Indication: PNEUMONIA
     Dosage: 6 GRAM DAILY;
     Route: 042
     Dates: start: 20170712, end: 20170718

REACTIONS (2)
  - Brain herniation [Fatal]
  - Altered state of consciousness [Not Recovered/Not Resolved]

NARRATIVE: CASE EVENT DATE: 20170718
